FAERS Safety Report 6340909-5 (Version None)
Quarter: 2009Q3

REPORT INFORMATION
  Report Type: 
  Country: None (occurrence: None)
  Receive Date: 20090904
  Receipt Date: 20090831
  Transmission Date: 20100115
  Serious: No
  Sender: FDA-Public Use
  Company Number: US-B.I. PHARMACEUTICALS,INC./RIDGEFIELD-2009-BP-10264BP

PATIENT
  Sex: Female

DRUGS (5)
  1. SPIRIVA [Suspect]
     Indication: CHRONIC OBSTRUCTIVE PULMONARY DISEASE
     Dosage: 18 MCG
     Route: 055
     Dates: start: 20090723, end: 20090727
  2. ALPRAZOLAM [Concomitant]
     Indication: PANIC ATTACK
     Dates: start: 20050101
  3. LEVOTHYROXINE [Concomitant]
     Indication: HYPOTHYROIDISM
     Dates: start: 20060101
  4. METOPROLOL [Concomitant]
     Indication: HYPERTENSION
     Dates: start: 20070101
  5. AMITRIPTYLINE [Concomitant]
     Indication: INSOMNIA
     Dates: start: 19990101

REACTIONS (3)
  - DYSPHONIA [None]
  - NECK MASS [None]
  - SENSATION OF FOREIGN BODY [None]
